FAERS Safety Report 9393864 (Version 2)
Quarter: 2013Q3

REPORT INFORMATION
  Report Type: Spontaneous
  Country: JP (occurrence: JP)
  Receive Date: 20130710
  Receipt Date: 20130711
  Transmission Date: 20140515
  Serious: Yes (Hospitalization)
  Sender: FDA-Public Use
  Company Number: JP-ASTRAZENECA-2013SE36211

PATIENT
  Age: 24 Year
  Sex: Female
  Weight: 58 kg

DRUGS (14)
  1. DIPRIVAN [Suspect]
     Indication: SEDATION
     Dosage: 40 MG/H
     Route: 042
     Dates: start: 20130517
  2. DIPRIVAN [Suspect]
     Indication: FLUSHING
     Dosage: 40 MG/H
     Route: 042
     Dates: start: 20130517
  3. DIPRIVAN [Suspect]
     Indication: SEDATION
     Route: 042
     Dates: start: 20130517
  4. DIPRIVAN [Suspect]
     Indication: FLUSHING
     Route: 042
     Dates: start: 20130517
  5. DIPRIVAN [Suspect]
     Indication: SEDATION
     Dosage: 60 MG/H
     Route: 042
     Dates: start: 20130518
  6. DIPRIVAN [Suspect]
     Indication: FLUSHING
     Dosage: 60 MG/H
     Route: 042
     Dates: start: 20130518
  7. DIPRIVAN [Suspect]
     Indication: SEDATION
     Dosage: 100 MG/H
     Route: 042
     Dates: start: 20130518
  8. DIPRIVAN [Suspect]
     Indication: FLUSHING
     Dosage: 100 MG/H
     Route: 042
     Dates: start: 20130518
  9. DIPRIVAN [Suspect]
     Indication: SEDATION
     Dosage: 140 MG/H
     Route: 042
     Dates: start: 20130518
  10. DIPRIVAN [Suspect]
     Indication: FLUSHING
     Dosage: 140 MG/H
     Route: 042
     Dates: start: 20130518
  11. DIPRIVAN [Suspect]
     Indication: SEDATION
     Dosage: 150 MG/H
     Route: 042
     Dates: start: 20130518
  12. DIPRIVAN [Suspect]
     Indication: FLUSHING
     Dosage: 150 MG/H
     Route: 042
     Dates: start: 20130518
  13. SILECE [Concomitant]
     Indication: SEDATION
     Route: 040
     Dates: start: 20130518, end: 20130518
  14. SERENACE [Concomitant]
     Indication: SEDATION
     Route: 041
     Dates: start: 20130518, end: 20130518

REACTIONS (5)
  - Blood creatine phosphokinase increased [Recovered/Resolved]
  - Abnormal behaviour [Unknown]
  - Agitation [Unknown]
  - Restlessness [Unknown]
  - Drug effect incomplete [Unknown]
